FAERS Safety Report 9768491 (Version 1)
Quarter: 2013Q4

REPORT INFORMATION
  Report Type: Spontaneous
  Country: IT (occurrence: IT)
  Receive Date: 20131217
  Receipt Date: 20131217
  Transmission Date: 20140711
  Serious: Yes (Other)
  Sender: FDA-Public Use
  Company Number: IT-ASTRAZENECA-2013SE90121

PATIENT
  Age: 25007 Day
  Sex: Male

DRUGS (3)
  1. ATENOLOL [Suspect]
     Indication: HYPERTENSION
     Route: 048
     Dates: end: 20131118
  2. ZESTORETIC (HYDROCHLOROTHIAZIDE AND LISINOPRIL) [Concomitant]
     Indication: HYPERTENSION
  3. CARDIOASPIRIN (ASA) [Concomitant]

REACTIONS (2)
  - Angioedema [Recovering/Resolving]
  - Sinus bradycardia [Recovering/Resolving]
